FAERS Safety Report 9722564 (Version 1)
Quarter: 2013Q4

REPORT INFORMATION
  Report Type: Report from Study
  Country: LB (occurrence: LB)
  Receive Date: 20131202
  Receipt Date: 20131202
  Transmission Date: 20140711
  Serious: Yes (Hospitalization)
  Sender: FDA-Public Use
  Company Number: LB-SA-2013SA122219

PATIENT
  Age: 53 Year
  Sex: Female

DRUGS (8)
  1. LANTUS SOLOSTAR [Suspect]
     Indication: DIABETES MELLITUS
     Dosage: DOSE:36 UNIT(S)
     Route: 058
     Dates: start: 2013
  2. SOLOSTAR [Concomitant]
     Dates: start: 2013
  3. GLUCOPHAGE [Concomitant]
     Indication: DIABETES MELLITUS
     Route: 048
  4. DIAMICRON [Concomitant]
     Indication: DIABETES MELLITUS
     Route: 048
  5. PRAXILENE [Concomitant]
     Route: 048
  6. LIPONORM [Concomitant]
     Route: 048
  7. GASTRIMUT [Concomitant]
     Route: 048
  8. ASPICOT [Concomitant]
     Route: 048

REACTIONS (1)
  - Nail infection [Recovered/Resolved]
